FAERS Safety Report 22317693 (Version 1)
Quarter: 2023Q2

REPORT INFORMATION
  Report Type: Report from Study
  Country: CA (occurrence: CA)
  Receive Date: 20230515
  Receipt Date: 20230515
  Transmission Date: 20230721
  Serious: Yes (Hospitalization)
  Sender: FDA-Public Use
  Company Number: CA-ABBVIE-4763876

PATIENT
  Sex: Male

DRUGS (1)
  1. RINVOQ [Suspect]
     Active Substance: UPADACITINIB
     Indication: Rheumatoid arthritis
     Dosage: 15 MG FORM STRENGTH
     Route: 048
     Dates: start: 20200717

REACTIONS (3)
  - Blood pressure abnormal [Unknown]
  - Hepatic enzyme abnormal [Unknown]
  - C-reactive protein abnormal [Unknown]
